FAERS Safety Report 4384311-4 (Version None)
Quarter: 2004Q2

REPORT INFORMATION
  Report Type: 
  Country: None (occurrence: None)
  Receive Date: 20040621
  Receipt Date: 20040609
  Transmission Date: 20050107
  Serious: Yes (Hospitalization, Other)
  Sender: FDA-Public Use
  Company Number: 2004-04-0760

PATIENT
  Age: 68 Year
  Sex: Male

DRUGS (7)
  1. CELESTONE [Suspect]
     Indication: CHRONIC LYMPHOCYTIC LEUKAEMIA
     Dosage: 2-1 MG QD ORAL
     Route: 048
     Dates: start: 19990401
  2. RENITEC [Concomitant]
  3. OMEPRAZOLE [Concomitant]
  4. KALEORID [Concomitant]
  5. SURBRONC [Concomitant]
  6. ANTIBIOTIC [Concomitant]
  7. CHLORAMBUCIL [Concomitant]

REACTIONS (16)
  - ABDOMINAL ABSCESS [None]
  - ANAESTHETIC COMPLICATION [None]
  - BLOOD CORTICOTROPHIN DECREASED [None]
  - COLON CANCER [None]
  - DIVERTICULUM INTESTINAL [None]
  - DRUG INEFFECTIVE [None]
  - DRUG WITHDRAWAL SYNDROME [None]
  - HAEMORRHAGE [None]
  - INTERVERTEBRAL DISC PROTRUSION [None]
  - LUNG INFECTION [None]
  - OEDEMA PERIPHERAL [None]
  - OSTEOPENIA [None]
  - OSTEOPOROSIS [None]
  - PAIN [None]
  - PHLEBITIS [None]
  - WEIGHT INCREASED [None]
